FAERS Safety Report 14471848 (Version 2)
Quarter: 2018Q1

REPORT INFORMATION
  Report Type: Spontaneous
  Country: US (occurrence: US)
  Receive Date: 20180131
  Receipt Date: 20180320
  Transmission Date: 20180509
  Serious: Yes (Hospitalization, Other)
  Sender: FDA-Public Use
  Company Number: PHEH2018US003249

PATIENT
  Age: 62 Year
  Sex: Female
  Weight: 86.4 kg

DRUGS (13)
  1. VOTRIENT [Suspect]
     Active Substance: PAZOPANIB HYDROCHLORIDE
     Indication: SOFT TISSUE SARCOMA
     Dosage: 200 MG, QID
     Route: 048
     Dates: start: 20170615, end: 20170915
  2. MESALAMINE. [Concomitant]
     Active Substance: MESALAMINE
     Indication: PRODUCT USED FOR UNKNOWN INDICATION
     Dosage: 2 DF, QD
     Route: 048
     Dates: start: 20170710
  3. ANUCORT-HC [Concomitant]
     Active Substance: HYDROCORTISONE ACETATE
     Indication: PRODUCT USED FOR UNKNOWN INDICATION
     Dosage: 1 DF, QD
     Route: 054
  4. TYLENOL [Concomitant]
     Active Substance: ACETAMINOPHEN
     Indication: PRODUCT USED FOR UNKNOWN INDICATION
     Dosage: UNK UNK, QD (PRN)
     Route: 048
  5. VOTRIENT [Suspect]
     Active Substance: PAZOPANIB HYDROCHLORIDE
     Indication: RENAL CELL CARCINOMA
     Dosage: 3 OT, QD
     Route: 048
     Dates: start: 201608
  6. GAS-X [Concomitant]
     Active Substance: DIMETHICONE
     Indication: PRODUCT USED FOR UNKNOWN INDICATION
     Dosage: UNK UNK, TID
     Route: 048
  7. DIPHENOXYLATE/ATROPINE [Concomitant]
     Active Substance: ATROPINE\DIPHENOXYLATE
     Indication: PRODUCT USED FOR UNKNOWN INDICATION
     Dosage: 2 DF, QID
     Route: 048
  8. DELZICOL [Concomitant]
     Active Substance: MESALAMINE
     Indication: PRODUCT USED FOR UNKNOWN INDICATION
     Dosage: 2 DF, BID
     Route: 065
     Dates: start: 20170712
  9. LOMOTIL [Concomitant]
     Active Substance: ATROPINE SULFATE\DIPHENOXYLATE HYDROCHLORIDE
     Indication: PRODUCT USED FOR UNKNOWN INDICATION
     Dosage: UNK UNK, PRN
     Route: 048
  10. PREDNISONE. [Concomitant]
     Active Substance: PREDNISONE
     Indication: PRODUCT USED FOR UNKNOWN INDICATION
     Route: 065
  11. OMEPRAZOLE. [Concomitant]
     Active Substance: OMEPRAZOLE
     Indication: PRODUCT USED FOR UNKNOWN INDICATION
     Dosage: 1 DF, QD
     Route: 048
  12. METHYLPREDNISOLONE. [Concomitant]
     Active Substance: METHYLPREDNISOLONE
     Indication: PRODUCT USED FOR UNKNOWN INDICATION
     Dosage: 1 DF, TID
     Route: 048
  13. MAALOX ANTACID [Concomitant]
     Active Substance: ALUMINUM HYDROXIDE\DIMETHICONE\MAGNESIUM HYDROXIDE
     Indication: PRODUCT USED FOR UNKNOWN INDICATION
     Dosage: 10 ML, QHS
     Route: 048

REACTIONS (23)
  - Diarrhoea haemorrhagic [Recovering/Resolving]
  - Gastrointestinal inflammation [Unknown]
  - Ill-defined disorder [Unknown]
  - Electrolyte imbalance [Unknown]
  - Oedema [Unknown]
  - Vascular fragility [Unknown]
  - Mucosal ulceration [Unknown]
  - Nausea [Unknown]
  - Diarrhoea [Not Recovered/Not Resolved]
  - Malnutrition [Unknown]
  - Fall [Unknown]
  - Chest discomfort [Unknown]
  - Haematochezia [Unknown]
  - Emotional distress [Unknown]
  - Inflammation [Unknown]
  - Colitis erosive [Unknown]
  - Mucous stools [Unknown]
  - Dizziness [Unknown]
  - Haemorrhoids [Unknown]
  - Vomiting [Unknown]
  - Rectal haemorrhage [Unknown]
  - Colon neoplasm [Unknown]
  - Abdominal pain [Recovering/Resolving]

NARRATIVE: CASE EVENT DATE: 201706
